APPROVED DRUG PRODUCT: CYTARABINE
Active Ingredient: CYTARABINE
Strength: 1GM/VIAL **Federal Register determination that product was not discontinued or withdrawn for safety or effectiveness reasons**
Dosage Form/Route: INJECTABLE;INJECTION
Application: N016793 | Product #003
Applicant: TEVA PARENTERAL MEDICINES INC
Approved: Dec 21, 1987 | RLD: Yes | RS: No | Type: DISCN